FAERS Safety Report 17136813 (Version 1)
Quarter: 2019Q4

REPORT INFORMATION
  Report Type: Report from Study
  Country: IT (occurrence: IT)
  Receive Date: 20191210
  Receipt Date: 20191210
  Transmission Date: 20200122
  Serious: Yes (Other)
  Sender: FDA-Public Use
  Company Number: PHHY2015IT071127

PATIENT
  Age: 35 Year
  Sex: Female

DRUGS (1)
  1. GILENYA [Suspect]
     Active Substance: FINGOLIMOD HYDROCHLORIDE
     Indication: MULTIPLE SCLEROSIS
     Dosage: 0.5 MG, QD
     Route: 048
     Dates: start: 20140926, end: 20150123

REACTIONS (7)
  - Herpes zoster [Recovered/Resolved]
  - Rash [Unknown]
  - Radiculopathy [Unknown]
  - Lymphopenia [Recovered/Resolved]
  - Post herpetic neuralgia [Recovered/Resolved]
  - Lymphocyte percentage decreased [Unknown]
  - Asphyxia [Recovered/Resolved]

NARRATIVE: CASE EVENT DATE: 20150122
